FAERS Safety Report 5411527-8 (Version None)
Quarter: 2007Q3

REPORT INFORMATION
  Report Type: 
  Country: None (occurrence: None)
  Receive Date: 20070810
  Receipt Date: 20070802
  Transmission Date: 20080115
  Serious: Yes (Hospitalization)
  Sender: FDA-Public Use
  Company Number: US-PFIZER INC-2007063748

PATIENT
  Age: 21 Year
  Sex: Male
  Weight: 30 kg

DRUGS (10)
  1. FLUCONAZOLE [Suspect]
     Dosage: DAILY DOSE:1.5MG
     Route: 042
  2. KEPPRA [Suspect]
     Indication: CONVULSION
     Dosage: DAILY DOSE:300MG
     Route: 042
  3. NEXIUM [Suspect]
     Dosage: DAILY DOSE:20MG
     Route: 042
  4. ATIVAN [Suspect]
     Indication: AGITATION
  5. CLONIDINE [Suspect]
     Dosage: FREQ:FREQUENCY: TRD
  6. METHADONE HCL [Suspect]
     Route: 048
  7. DIAZEPAM [Suspect]
     Indication: AGITATION
     Route: 042
  8. PEPCID [Suspect]
     Dosage: DAILY DOSE:20MG
     Route: 042
  9. DEMEROL [Suspect]
     Indication: PAIN
  10. PAXIL [Suspect]
     Dosage: DAILY DOSE:15MG
     Route: 048

REACTIONS (1)
  - PANCREATITIS [None]
